FAERS Safety Report 8889109 (Version 1)
Quarter: 2012Q4

REPORT INFORMATION
  Report Type: 
  Country: CN (occurrence: CN)
  Receive Date: 20121106
  Receipt Date: 20121106
  Transmission Date: 20130627
  Serious: Yes (Death)
  Sender: FDA-Public Use
  Company Number: CN-PFIZER INC-2012274888

PATIENT
  Age: 82 Year
  Sex: Female

DRUGS (3)
  1. SUTENT [Suspect]
     Indication: RENAL CELL CARCINOMA
     Dosage: 25 to 37.5 mg
     Route: 048
  2. DIPROPHYLLINE [Concomitant]
     Dosage: UNK
  3. SOLU-MEDROL [Concomitant]
     Dosage: UNK

REACTIONS (6)
  - Disease progression [Fatal]
  - Renal cell carcinoma [Fatal]
  - Multi-organ failure [Fatal]
  - Decreased immune responsiveness [Unknown]
  - White blood cell count decreased [Unknown]
  - Gastrointestinal disorder [Unknown]
